FAERS Safety Report 6507383-7 (Version None)
Quarter: 2009Q4

REPORT INFORMATION
  Report Type: 
  Country: None (occurrence: None)
  Receive Date: 20091201
  Receipt Date: 20090323
  Transmission Date: 20100525
  Serious: Yes (Other)
  Sender: FDA-Public Use
  Company Number: 2009-193756-NL

PATIENT
  Age: 24 Year
  Sex: Female
  Weight: 108.9 kg

DRUGS (1)
  1. NUVARING [Suspect]
     Indication: CONTRACEPTION
     Dates: start: 20070801, end: 20090310

REACTIONS (1)
  - THROMBOPHLEBITIS SUPERFICIAL [None]
